FAERS Safety Report 7618612-0 (Version None)
Quarter: 2011Q3

REPORT INFORMATION
  Report Type: 
  Country: None (occurrence: None)
  Receive Date: 20110718
  Receipt Date: 20110712
  Transmission Date: 20111222
  Serious: Yes (Hospitalization, Other)
  Sender: FDA-Public Use
  Company Number: US-BRISTOL-MYERS SQUIBB COMPANY-15896483

PATIENT
  Age: 75 Year
  Sex: Female
  Weight: 57 kg

DRUGS (5)
  1. SOTALOL HCL [Suspect]
     Route: 048
  2. PRADAXA [Suspect]
     Indication: ATRIAL FIBRILLATION
     Dosage: TABLET
     Route: 048
     Dates: start: 20091201, end: 20110501
  3. COUMADIN [Suspect]
     Dosage: INTERRUPTED ON UNK DATE AND RESTARTED FROM PAST 2 WEEKS
     Route: 048
  4. MULTAQ [Suspect]
     Dates: end: 20110501
  5. AMIODARONE HCL [Suspect]
     Indication: ATRIAL FIBRILLATION
     Dosage: FOR 15-16 DAYS,THEN DOSE REDUCED TO DAILY
     Route: 048
     Dates: start: 20091201, end: 20110501

REACTIONS (6)
  - LARGE INTESTINAL HAEMORRHAGE [None]
  - PULMONARY TOXICITY [None]
  - PAIN [None]
  - DYSPNOEA [None]
  - HIP FRACTURE [None]
  - BLADDER DISORDER [None]
